FAERS Safety Report 6137476-8 (Version None)
Quarter: 2009Q1

REPORT INFORMATION
  Report Type: 
  Country: None (occurrence: None)
  Receive Date: 20090326
  Receipt Date: 20090311
  Transmission Date: 20090719
  Serious: Yes (Hospitalization)
  Sender: FDA-Public Use
  Company Number: 2008PL000142

PATIENT
  Age: 59 Year
  Sex: Male

DRUGS (1)
  1. ALLOPURINOL [Suspect]
     Indication: GOUT

REACTIONS (14)
  - ACIDOSIS [None]
  - BLISTER [None]
  - BLOOD KETONE BODY PRESENT [None]
  - EPIDERMOLYSIS [None]
  - GASTRIC DISORDER [None]
  - HYPERURICAEMIA [None]
  - HYPOALBUMINAEMIA [None]
  - HYPOKALAEMIA [None]
  - HYPONATRAEMIA [None]
  - OEDEMA PERIPHERAL [None]
  - RASH PUSTULAR [None]
  - SKIN DISCOLOURATION [None]
  - SKIN EXFOLIATION [None]
  - THROMBOCYTOPENIA [None]
